FAERS Safety Report 6609949-2 (Version None)
Quarter: 2010Q1

REPORT INFORMATION
  Report Type: 
  Country: None (occurrence: None)
  Receive Date: 20100302
  Receipt Date: 20100222
  Transmission Date: 20100710
  Serious: Yes (Other)
  Sender: FDA-Public Use
  Company Number: PHHO2010CA02901

PATIENT
  Sex: Male
  Weight: 60.7 kg

DRUGS (3)
  1. CERTICAN [Suspect]
     Indication: RENAL TRANSPLANT
     Dosage: 1.5 MG, BID
     Route: 048
     Dates: start: 20081127
  2. CELLCEPT [Concomitant]
     Indication: RENAL TRANSPLANT
     Dosage: UNK
     Route: 048
     Dates: start: 20060518
  3. PREDNISONE TAB [Concomitant]
     Indication: RENAL TRANSPLANT
     Dosage: UNK
     Route: 048
     Dates: start: 20060518

REACTIONS (3)
  - MALIGNANT TUMOUR EXCISION [None]
  - SKIN LESION [None]
  - SQUAMOUS CELL CARCINOMA [None]
